FAERS Safety Report 7737548-8 (Version None)
Quarter: 2011Q3

REPORT INFORMATION
  Report Type: 
  Country: None (occurrence: None)
  Receive Date: 20110908
  Receipt Date: 20110902
  Transmission Date: 20111222
  Serious: Yes (Other)
  Sender: FDA-Public Use
  Company Number: US-PFIZER INC-2011208024

PATIENT
  Sex: Female

DRUGS (2)
  1. EFFEXOR XR [Suspect]
  2. DETROL LA [Suspect]

REACTIONS (3)
  - BRAIN INJURY [None]
  - MENTAL DISORDER [None]
  - DEMENTIA [None]
